FAERS Safety Report 9445107 (Version 1)
Quarter: 2013Q3

REPORT INFORMATION
  Report Type: Spontaneous
  Country: CA (occurrence: None)
  Receive Date: 20130802
  Receipt Date: 20130802
  Transmission Date: 20140515
  Serious: Yes (Other)
  Sender: FDA-Public Use
  Company Number: 2013P1013470

PATIENT
  Age: 45 Year
  Sex: Female

DRUGS (1)
  1. PREDNISONE [Suspect]
     Indication: OPTIC NEURITIS
     Route: 048

REACTIONS (8)
  - Sinus bradycardia [None]
  - Asthenia [None]
  - Fatigue [None]
  - Headache [None]
  - Chest pain [None]
  - Dyspnoea exertional [None]
  - Oedema peripheral [None]
  - Blood glucose increased [None]
